FAERS Safety Report 21489557 (Version 1)
Quarter: 2022Q4

REPORT INFORMATION
  Report Type: Report from Study
  Country: US (occurrence: US)
  Receive Date: 20221021
  Receipt Date: 20221021
  Transmission Date: 20230112
  Serious: Yes (Hospitalization, Other)
  Sender: FDA-Public Use
  Company Number: US-BoehringerIngelheim-2021-BI-104040

PATIENT
  Age: 68 Year
  Sex: Male

DRUGS (2)
  1. OFEV [Suspect]
     Active Substance: NINTEDANIB
     Indication: Idiopathic pulmonary fibrosis
     Route: 048
     Dates: start: 20210324
  2. OFEV [Suspect]
     Active Substance: NINTEDANIB
     Route: 048
     Dates: start: 20210224

REACTIONS (29)
  - COVID-19 [Recovered/Resolved]
  - Urinary tract infection [Unknown]
  - Cardiac disorder [Unknown]
  - Coronary artery bypass [Unknown]
  - Dysarthria [Unknown]
  - Abdominal discomfort [Unknown]
  - Flatulence [Unknown]
  - Fall [Unknown]
  - Weight decreased [Not Recovered/Not Resolved]
  - Diarrhoea [Recovering/Resolving]
  - Cholelithiasis [Unknown]
  - Transurethral prostatectomy [Unknown]
  - Decreased appetite [Unknown]
  - Epistaxis [Unknown]
  - Haemoglobin decreased [Unknown]
  - Dyspnoea [Not Recovered/Not Resolved]
  - Cough [Unknown]
  - Illness [Unknown]
  - Pyrexia [Unknown]
  - Headache [Unknown]
  - Feeling cold [Unknown]
  - Abdominal pain upper [Unknown]
  - Haemorrhage [Unknown]
  - Renal failure [Unknown]
  - Blood phosphorus decreased [Unknown]
  - Fluid retention [Unknown]
  - Peripheral swelling [Unknown]
  - Abdominal discomfort [Unknown]
  - Product physical issue [Unknown]

NARRATIVE: CASE EVENT DATE: 20220101
